FAERS Safety Report 26200890 (Version 1)
Quarter: 2025Q4

REPORT INFORMATION
  Report Type: Spontaneous
  Country: EU (occurrence: EU)
  Receive Date: 20251226
  Receipt Date: 20251226
  Transmission Date: 20260118
  Serious: Yes (Death)
  Sender: JOHNSON AND JOHNSON
  Company Number: EU-OTSUKA-2025_031165

PATIENT
  Age: 5 Decade
  Sex: Male

DRUGS (4)
  1. BEDAQUILINE [Suspect]
     Active Substance: BEDAQUILINE
     Indication: Tuberculosis
     Dosage: UNK
  2. DELAMANID [Suspect]
     Active Substance: DELAMANID
     Indication: Tuberculosis
     Dosage: UNK
  3. LINEZOLID [Suspect]
     Active Substance: LINEZOLID
     Indication: Tuberculosis
     Dosage: UNK
  4. CLOFAZIMINE [Suspect]
     Active Substance: CLOFAZIMINE
     Indication: Tuberculosis
     Dosage: UNK

REACTIONS (1)
  - Metabolic acidosis [Fatal]
